FAERS Safety Report 9449151 (Version 2)
Quarter: 2013Q3

REPORT INFORMATION
  Report Type: Spontaneous
  Country: US (occurrence: None)
  Receive Date: 20130806
  Receipt Date: 20130822
  Transmission Date: 20140515
  Serious: Yes (Hospitalization, Other)
  Sender: FDA-Public Use
  Company Number: 2013US001942

PATIENT
  Age: 63 Year
  Sex: Female
  Weight: 78 kg

DRUGS (13)
  1. ICLUSIG [Suspect]
     Indication: CHRONIC MYELOID LEUKAEMIA
     Route: 048
     Dates: start: 20130618
  2. CLONAZEPAM (CLONAZEPAM) (CLONAZEPAM) [Concomitant]
  3. VITAMIN E [Concomitant]
  4. SPIRIVA (TIOTROPIUM BROMIDE) (TIOTROPIUM BROMIDE) [Concomitant]
  5. SIMVASTATIN (SIMVASTATIN) [Concomitant]
  6. PAROXETINE (PAROXETINE) [Concomitant]
  7. OMEPRAZOLE (OMEPRAZOLE) [Concomitant]
  8. MULTIVITAMIN WITH B COMPLEX AND C [Concomitant]
  9. LEVOTHYROXINE (LEVOTHYROXINE) [Concomitant]
  10. ZYRTEC (CETIRIZINE HYROCHLORIDE) [Concomitant]
  11. CALCIUM WITH VITAMIN D [Concomitant]
  12. ASPIRIN [Concomitant]
  13. TYLENOL EXTRA STRENGTH [Concomitant]

REACTIONS (20)
  - Systemic inflammatory response syndrome [None]
  - Bacteraemia [None]
  - Haemoglobin decreased [None]
  - Aspartate aminotransferase increased [None]
  - Dehydration [None]
  - Platelet count decreased [None]
  - Rash [None]
  - International normalised ratio increased [None]
  - Fibrin D dimer increased [None]
  - Blood lactate dehydrogenase increased [None]
  - Anaemia [None]
  - Blood fibrinogen decreased [None]
  - Disseminated intravascular coagulation [None]
  - Bronchitis [None]
  - Chronic myeloid leukaemia [None]
  - Blood uric acid increased [None]
  - Weight abnormal [None]
  - Blood calcium decreased [None]
  - Blood phosphorus increased [None]
  - Night sweats [None]
